FAERS Safety Report 7732311-6 (Version None)
Quarter: 2011Q3

REPORT INFORMATION
  Report Type: 
  Country: None (occurrence: None)
  Receive Date: 20110906
  Receipt Date: 20110825
  Transmission Date: 20111222
  Serious: No
  Sender: FDA-Public Use
  Company Number: US-AMGEN-USASP2011043531

PATIENT
  Age: 66 Year
  Sex: Female

DRUGS (14)
  1. CALCIUM +D3 [Concomitant]
     Dosage: 1 MG, UNK
  2. SIMVASTATIN [Concomitant]
     Dosage: UNK UNK, QD
  3. LEXAPRO [Concomitant]
     Dosage: UNK UNK, QD
  4. COQ10 [Concomitant]
     Dosage: 1 MG, QD
  5. FISH OIL [Concomitant]
     Dosage: 1 MG, QD
  6. MAGNESIUM [Concomitant]
     Dosage: 1 MG, QD
  7. SUPER B COMPLEX [Concomitant]
     Dosage: UNK UNK, QD
  8. CINNAMON [Concomitant]
     Dosage: 1 MG, QD
  9. GINKGO BILOBA [Concomitant]
     Dosage: UNK UNK, QD
  10. THYROID TAB [Concomitant]
     Dosage: UNK UNK, QD
  11. PROLIA [Suspect]
     Indication: OSTEOPOROSIS POSTMENOPAUSAL
     Dosage: 60 MG, Q6MO
     Dates: start: 20110301
  12. VITAMIN D [Concomitant]
     Dosage: 1 IU, QD
  13. VITAMIN D [Concomitant]
     Dosage: 1 IU, QD
  14. TEA, GREEN [Concomitant]
     Dosage: 1 MG, QD

REACTIONS (1)
  - PAIN IN EXTREMITY [None]
